FAERS Safety Report 26119679 (Version 1)
Quarter: 2025Q4

REPORT INFORMATION
  Report Type: Spontaneous
  Country: US (occurrence: US)
  Receive Date: 20251204
  Receipt Date: 20251204
  Transmission Date: 20260118
  Serious: Yes (Other)
  Sender: Invivyd
  Company Number: US-INVIVYD-US-INV-25-000320

PATIENT
  Age: 48 Year
  Sex: Female

DRUGS (3)
  1. PEMGARDA [Suspect]
     Active Substance: PEMIVIBART
     Indication: Meningitis
     Dosage: 4500 MILLIGRAM, Q3 MONTHS
     Route: 042
     Dates: start: 20251121, end: 20251121
  2. PEMGARDA [Suspect]
     Active Substance: PEMIVIBART
     Indication: Immunodeficiency
     Dosage: UNK
     Route: 042
     Dates: start: 20250521, end: 20250521
  3. PEMGARDA [Suspect]
     Active Substance: PEMIVIBART
     Dosage: UNK
     Route: 042
     Dates: start: 20250820, end: 20250820

REACTIONS (5)
  - Vision blurred [Not Recovered/Not Resolved]
  - Vitreous floaters [Not Recovered/Not Resolved]
  - Hypertension [Unknown]
  - Tachycardia [Unknown]
  - Off label use [Unknown]

NARRATIVE: CASE EVENT DATE: 20250521
